FAERS Safety Report 6029988-2 (Version None)
Quarter: 2009Q1

REPORT INFORMATION
  Report Type: 
  Country: None (occurrence: None)
  Receive Date: 20090107
  Receipt Date: 20090102
  Transmission Date: 20090719
  Serious: Yes (Other)
  Sender: FDA-Public Use
  Company Number: B0552600A

PATIENT
  Age: 53 Year
  Sex: Female

DRUGS (3)
  1. VENTOLIN [Suspect]
     Indication: ASTHMA
     Route: 055
     Dates: start: 20081229, end: 20090102
  2. ROXITHROMYCIN [Concomitant]
     Route: 065
  3. ALVESCO [Concomitant]
     Route: 065

REACTIONS (4)
  - ASTHMA [None]
  - COUGH [None]
  - ILL-DEFINED DISORDER [None]
  - PRODUCTIVE COUGH [None]
